FAERS Safety Report 8642607 (Version 4)
Quarter: 2012Q4

REPORT INFORMATION
  Report Type: 
  Country: US (occurrence: US)
  Receive Date: 20120629
  Receipt Date: 20120828
  Transmission Date: 20130627
  Serious: No
  Sender: FDA-Public Use
  Company Number: US-PFIZER INC-2012152538

PATIENT
  Age: 68 Year
  Sex: Female

DRUGS (1)
  1. FLECTOR [Suspect]
     Indication: BACK PAIN
     Dosage: 1.3 %, BID
     Dates: start: 20111223

REACTIONS (2)
  - Drug ineffective [Unknown]
  - Product adhesion issue [Unknown]
